FAERS Safety Report 7237767-3 (Version None)
Quarter: 2011Q1

REPORT INFORMATION
  Report Type: 
  Country: None (occurrence: None)
  Receive Date: 20110121
  Receipt Date: 20110110
  Transmission Date: 20110831
  Serious: Yes (Other)
  Sender: FDA-Public Use
  Company Number: US-ROCHE-752428

PATIENT

DRUGS (6)
  1. FK-778 [Suspect]
     Indication: IMMUNOSUPPRESSION
     Dosage: LOADING DOSE ON DAY 1.
     Route: 065
  2. MYCOPHENOLATE MOFETIL [Suspect]
     Indication: IMMUNOSUPPRESSION
     Route: 065
  3. TACROLIMUS [Suspect]
     Indication: IMMUNOSUPPRESSION
     Route: 065
  4. FK-778 [Suspect]
     Dosage: WITH DOSE ADJUSTMENTS
     Route: 065
  5. SIROLIMUS [Suspect]
     Indication: IMMUNOSUPPRESSION
     Route: 065
  6. CYCLOSPORINE [Suspect]
     Indication: IMMUNOSUPPRESSION
     Route: 065

REACTIONS (32)
  - INTRACRANIAL ANEURYSM [None]
  - FAILURE TO THRIVE [None]
  - HYPOGLYCAEMIA [None]
  - CELLULITIS [None]
  - CHEST PAIN [None]
  - HYPOXIA [None]
  - PAIN IN EXTREMITY [None]
  - DEEP VEIN THROMBOSIS [None]
  - DIARRHOEA [None]
  - HYPOTENSION [None]
  - VOMITING [None]
  - BRONCHITIS [None]
  - POLYOMAVIRUS-ASSOCIATED NEPHROPATHY [None]
  - BLOOD CREATININE INCREASED [None]
  - COMPLICATIONS OF TRANSPLANT SURGERY [None]
  - INTESTINAL OBSTRUCTION [None]
  - OSTEONECROSIS [None]
  - DYSPNOEA [None]
  - ESCHERICHIA URINARY TRACT INFECTION [None]
  - ASTHENIA [None]
  - PNEUMONIA STAPHYLOCOCCAL [None]
  - SEPSIS [None]
  - GOITRE [None]
  - BRADYCARDIA [None]
  - PYREXIA [None]
  - SEPTIC SHOCK [None]
  - MENTAL STATUS CHANGES [None]
  - NECROTISING FASCIITIS [None]
  - PYELONEPHRITIS [None]
  - RENAL FAILURE [None]
  - GLOMERULONEPHRITIS [None]
  - SKIN CANCER [None]
